FAERS Safety Report 18487480 (Version 2)
Quarter: 2020Q4

REPORT INFORMATION
  Report Type: Spontaneous
  Country: PT (occurrence: PT)
  Receive Date: 20201110
  Receipt Date: 20201125
  Transmission Date: 20210114
  Serious: Yes (Other)
  Sender: FDA-Public Use
  Company Number: NVSC2020PT300678

PATIENT
  Age: 65 Year
  Sex: Female

DRUGS (6)
  1. RIBOCICLIB. [Suspect]
     Active Substance: RIBOCICLIB
     Dosage: 400 MG, CYCLES EVERY 28 DAYS
     Route: 048
  2. ZOLEDRONIC ACID [Concomitant]
     Active Substance: ZOLEDRONIC ACID
     Indication: BREAST CANCER STAGE IV
     Dosage: 4 MG (EVERY 28 DAYS)
     Route: 042
  3. LETROZOLE. [Concomitant]
     Active Substance: LETROZOLE
     Indication: BREAST CANCER STAGE IV
     Dosage: 2.5 MG, QD(ID (ONCE A DAY)
     Route: 048
  4. RIBOCICLIB. [Suspect]
     Active Substance: RIBOCICLIB
     Indication: BREAST CANCER STAGE IV
     Dosage: 600 MG, CYCLES EVERY 28 DAYS
     Route: 048
     Dates: start: 20181115
  5. RIBOCICLIB. [Suspect]
     Active Substance: RIBOCICLIB
     Dosage: 600 MG, CYCLES EVERY 28 DAYS
     Route: 048
  6. LISINOPRIL. [Concomitant]
     Active Substance: LISINOPRIL
     Indication: PRODUCT USED FOR UNKNOWN INDICATION
     Dosage: 20 MG, QD (ID ONCE A DAY))
     Route: 065

REACTIONS (3)
  - Rash pruritic [Recovered/Resolved]
  - Rash [Recovered/Resolved]
  - Neutropenia [Recovered/Resolved]
